FAERS Safety Report 24959102 (Version 2)
Quarter: 2025Q1

REPORT INFORMATION
  Report Type: Spontaneous
  Country: SK (occurrence: SK)
  Receive Date: 20250212
  Receipt Date: 20250319
  Transmission Date: 20250409
  Serious: Yes (Disabling, Other)
  Sender: ABBVIE
  Company Number: SK-ABBVIE-6127215

PATIENT
  Age: 46 Year
  Sex: Female

DRUGS (3)
  1. OZURDEX [Suspect]
     Active Substance: DEXAMETHASONE
     Indication: Macular oedema
     Route: 050
     Dates: start: 20211207, end: 20240403
  2. OZURDEX [Suspect]
     Active Substance: DEXAMETHASONE
     Indication: Uveitis
     Dosage: 0.7 MG
     Route: 050
     Dates: start: 202406, end: 202406
  3. PREDNISONE [Concomitant]
     Active Substance: PREDNISONE
     Indication: Uveitis
     Route: 048

REACTIONS (7)
  - Blindness [Unknown]
  - Retinal detachment [Not Recovered/Not Resolved]
  - Visual impairment [Not Recovered/Not Resolved]
  - Retinal disorder [Unknown]
  - Maculopathy [Unknown]
  - Uveitis [Unknown]
  - Amblyopia [Unknown]

NARRATIVE: CASE EVENT DATE: 20240610
